FAERS Safety Report 21576343 (Version 1)
Quarter: 2022Q4

REPORT INFORMATION
  Report Type: Spontaneous
  Country: US (occurrence: US)
  Receive Date: 20221110
  Receipt Date: 20221110
  Transmission Date: 20230113
  Serious: Yes (Death, Other)
  Sender: FDA-Public Use
  Company Number: US-BRISTOL-MYERS SQUIBB COMPANY-2022-132621

PATIENT
  Age: 65 Year
  Sex: Female
  Weight: 49.9 kg

DRUGS (16)
  1. ELIQUIS [Suspect]
     Active Substance: APIXABAN
     Indication: Product used for unknown indication
     Route: 048
  2. DILTIZEM [Concomitant]
  3. AMLODIPINE [Concomitant]
     Active Substance: AMLODIPINE BESYLATE
  4. AMOXICILLIN [Concomitant]
     Active Substance: AMOXICILLIN
  5. BUPROPION [Concomitant]
     Active Substance: BUPROPION
  6. CARISOPRODOL [Concomitant]
     Active Substance: CARISOPRODOL
  7. DULOXETINE [Concomitant]
     Active Substance: DULOXETINE
  8. FROVATRIPTAN [Concomitant]
     Active Substance: FROVATRIPTAN
  9. FUROSEMIDE [Concomitant]
     Active Substance: FUROSEMIDE
  10. ONDANSETRON [Concomitant]
     Active Substance: ONDANSETRON
  11. OXYCODONE [Concomitant]
     Active Substance: OXYCODONE
  12. PANTOPRAZOLE [Concomitant]
     Active Substance: PANTOPRAZOLE
  13. CALCIUM CHLORIDE [Concomitant]
     Active Substance: CALCIUM CHLORIDE
  14. PRAMIPEXOLE [Concomitant]
     Active Substance: PRAMIPEXOLE
  15. SOTALOL [Concomitant]
     Active Substance: SOTALOL
  16. VANCOMYCIN [Concomitant]
     Active Substance: VANCOMYCIN

REACTIONS (1)
  - Death [Fatal]
